FAERS Safety Report 9097893 (Version 2)
Quarter: 2013Q1

REPORT INFORMATION
  Report Type: Report from Study
  Country: US (occurrence: US)
  Receive Date: 20130212
  Receipt Date: 20130306
  Transmission Date: 20140127
  Serious: Yes (Death)
  Sender: FDA-Public Use
  Company Number: US-ROCHE-1190086

PATIENT
  Age: 49 Year
  Sex: Female

DRUGS (10)
  1. XELODA [Suspect]
     Indication: OESOPHAGEAL CARCINOMA
     Route: 048
     Dates: start: 201212, end: 20130107
  2. GUAIFENESIN [Concomitant]
     Indication: COUGH
     Route: 048
  3. DILAUDID [Concomitant]
     Indication: PAIN
     Route: 048
  4. SYNTHYROID [Concomitant]
     Indication: HYPOTHYROIDISM
     Route: 048
  5. CULTURELLE [Concomitant]
     Route: 048
  6. ATIVAN [Concomitant]
     Indication: ANXIETY
     Route: 048
  7. MORPHINE SULFATE [Concomitant]
     Indication: PAIN
     Route: 065
  8. MEGACE [Concomitant]
     Route: 048
  9. MS CONTIN [Concomitant]
     Route: 048
  10. PROTONIX [Concomitant]
     Route: 048

REACTIONS (1)
  - Hypercalcaemia of malignancy [Fatal]
